FAERS Safety Report 6935102-9 (Version None)
Quarter: 2010Q3

REPORT INFORMATION
  Report Type: 
  Country: None (occurrence: None)
  Receive Date: 20100822
  Receipt Date: 20100813
  Transmission Date: 20110219
  Serious: Yes (Death, Hospitalization, Other)
  Sender: FDA-Public Use
  Company Number: PHEH2007US00518

PATIENT
  Sex: Male

DRUGS (24)
  1. AREDIA [Suspect]
  2. ZOMETA [Suspect]
  3. EULEXIN [Concomitant]
  4. LISINOPRIL [Concomitant]
  5. LUPRON [Concomitant]
  6. ZYRTEC [Concomitant]
  7. NAVELBINE [Concomitant]
  8. RADIATION THERAPY [Concomitant]
  9. CHEMOTHERAPEUTICS NOS [Concomitant]
  10. METOPROLOL TARTRATE [Concomitant]
  11. DIGOXIN [Concomitant]
  12. ASPIRIN [Concomitant]
  13. PROTONIX [Concomitant]
  14. PROCHLORPERAZINE [Concomitant]
  15. OXYCODONE [Concomitant]
  16. OXYCODONE AND ACETAMINOPHEN [Concomitant]
  17. IBUPROFEN [Concomitant]
  18. LOPRESSOR [Concomitant]
  19. LANOXIN [Concomitant]
  20. EMCYT [Concomitant]
  21. MULTI-VITAMINS [Concomitant]
  22. PROCRIT                            /00909301/ [Concomitant]
  23. ALOXI [Concomitant]
  24. ZESTRIL [Concomitant]

REACTIONS (74)
  - ABDOMINAL HERNIA [None]
  - ABDOMINAL PAIN [None]
  - ABDOMINAL PAIN UPPER [None]
  - ACUTE RESPIRATORY FAILURE [None]
  - ALANINE AMINOTRANSFERASE DECREASED [None]
  - ANXIETY [None]
  - BLOOD GLUCOSE INCREASED [None]
  - BLOOD PRESSURE INCREASED [None]
  - BONE DISORDER [None]
  - BONE PAIN [None]
  - BRONCHIECTASIS [None]
  - BRONCHITIS [None]
  - CENTRAL OBESITY [None]
  - CERVICAL SPINAL STENOSIS [None]
  - CHEST PAIN [None]
  - CLOSTRIDIUM DIFFICILE COLITIS [None]
  - COLITIS [None]
  - CONSTIPATION [None]
  - COUGH [None]
  - CYST [None]
  - CYST REMOVAL [None]
  - DEATH [None]
  - DECREASED APPETITE [None]
  - DECREASED INTEREST [None]
  - DEEP VEIN THROMBOSIS [None]
  - DEHYDRATION [None]
  - DENTAL CARIES [None]
  - DENTAL FISTULA [None]
  - DIARRHOEA [None]
  - DIVERTICULUM [None]
  - DRUG INTOLERANCE [None]
  - ENDOTRACHEAL INTUBATION [None]
  - EROSIVE OESOPHAGITIS [None]
  - ERUCTATION [None]
  - GENERAL PHYSICAL HEALTH DETERIORATION [None]
  - GLOSSODYNIA [None]
  - HAEMORRHOIDS [None]
  - HYPERKALAEMIA [None]
  - HYPOCALCAEMIA [None]
  - HYPOMAGNESAEMIA [None]
  - HYPOPHOSPHATAEMIA [None]
  - HYPOTENSION [None]
  - IRRITABLE BOWEL SYNDROME [None]
  - KYPHOSIS [None]
  - LIMB INJURY [None]
  - LYMPHADENOPATHY [None]
  - METABOLIC ACIDOSIS [None]
  - METASTASES TO LUNG [None]
  - MYOCARDIAL ISCHAEMIA [None]
  - NAUSEA [None]
  - OBSTRUCTION GASTRIC [None]
  - OSTEONECROSIS OF JAW [None]
  - OSTEOPENIA [None]
  - PAIN [None]
  - PANCREATITIS [None]
  - PERIODONTAL DISEASE [None]
  - PLEURAL EFFUSION [None]
  - PNEUMONIA [None]
  - PROCTITIS [None]
  - PRURITUS [None]
  - PULMONARY FIBROSIS [None]
  - RECTAL HAEMORRHAGE [None]
  - RENAL CYST [None]
  - RENAL FAILURE ACUTE [None]
  - SEPTIC SHOCK [None]
  - SINUSITIS [None]
  - SPINAL OSTEOARTHRITIS [None]
  - SUPRAVENTRICULAR TACHYCARDIA [None]
  - TELANGIECTASIA [None]
  - THORACIC VERTEBRAL FRACTURE [None]
  - VERTEBROPLASTY [None]
  - VOMITING [None]
  - WEIGHT DECREASED [None]
  - X-RAY [None]
